FAERS Safety Report 18114682 (Version 2)
Quarter: 2020Q3

REPORT INFORMATION
  Report Type: Spontaneous
  Country: DE (occurrence: DE)
  Receive Date: 20200805
  Receipt Date: 20200924
  Transmission Date: 20201103
  Serious: Yes (Hospitalization, Other)
  Sender: FDA-Public Use
  Company Number: DE-ROCHE-2652449

PATIENT
  Age: 68 Year
  Sex: Female
  Weight: 57 kg

DRUGS (1)
  1. KADCYLA [Suspect]
     Active Substance: ADO-TRASTUZUMAB EMTANSINE
     Indication: BREAST CANCER
     Route: 042
     Dates: start: 20200706, end: 20200706

REACTIONS (3)
  - Liver function test increased [Recovered/Resolved]
  - Drug-induced liver injury [Recovered/Resolved]
  - Physical disability [Unknown]

NARRATIVE: CASE EVENT DATE: 20200710
